FAERS Safety Report 12110890 (Version 2)
Quarter: 2016Q2

REPORT INFORMATION
  Report Type: Spontaneous
  Country: US (occurrence: US)
  Receive Date: 20160224
  Receipt Date: 20160517
  Transmission Date: 20160815
  Serious: Yes (Hospitalization, Disabling, Other)
  Sender: FDA-Public Use
  Company Number: US-JNJFOC-20160218850

PATIENT
  Age: 16 Year
  Sex: Female
  Weight: 55.9 kg

DRUGS (2)
  1. REMICADE [Suspect]
     Active Substance: INFLIXIMAB
     Indication: CROHN^S DISEASE
     Route: 042
     Dates: start: 201601, end: 201602
  2. REMICADE [Suspect]
     Active Substance: INFLIXIMAB
     Indication: CROHN^S DISEASE
     Route: 042

REACTIONS (7)
  - Crohn^s disease [Unknown]
  - Off label use [Unknown]
  - Myalgia [Unknown]
  - Drug prescribing error [Unknown]
  - Product use issue [Unknown]
  - Bone giant cell tumour benign [Recovering/Resolving]
  - Anorectal disorder [Unknown]

NARRATIVE: CASE EVENT DATE: 201601
